FAERS Safety Report 4645251-6 (Version None)
Quarter: 2005Q2

REPORT INFORMATION
  Report Type: 
  Country: None (occurrence: None)
  Receive Date: 20050331
  Receipt Date: 20041223
  Transmission Date: 20051028
  Serious: Yes (Hospitalization)
  Sender: FDA-Public Use
  Company Number: 04P-163-0272025-00

PATIENT
  Age: 67 Year
  Sex: Female
  Weight: 81.6475 kg

DRUGS (7)
  1. HUMIRA [Suspect]
     Indication: RHEUMATOID ARTHRITIS
     Dosage: 40 MG, 1 IN 2 WK, SUBCUTANEOUS
     Route: 058
     Dates: start: 20040311
  2. PREDNISONE TAB [Concomitant]
  3. CO-DIOVAN [Concomitant]
  4. FOLIC ACID [Concomitant]
  5. PANTOPRAZOLE [Concomitant]
  6. ALENDRONATE SODIUM [Concomitant]
  7. METOPROLOL SUCCINATE [Concomitant]

REACTIONS (3)
  - PERICARDITIS [None]
  - RASH [None]
  - TOOTH INFECTION [None]
